FAERS Safety Report 11267213 (Version 7)
Quarter: 2017Q1

REPORT INFORMATION
  Report Type: Spontaneous
  Country: US (occurrence: US)
  Receive Date: 20150713
  Receipt Date: 20170321
  Transmission Date: 20170428
  Serious: Yes (Other)
  Sender: FDA-Public Use
  Company Number: US-ASTELLAS-2015US024601

PATIENT
  Age: 79 Year
  Sex: Female

DRUGS (7)
  1. SIMVASTATIN. [Suspect]
     Active Substance: SIMVASTATIN
     Dosage: 20 MG, UNKNOWN FREQ.
     Route: 048
  2. TARCEVA [Suspect]
     Active Substance: ERLOTINIB HYDROCHLORIDE
     Dosage: 75 MG, ONCE DAILY X 3 WEEKS
     Route: 048
     Dates: start: 201509
  3. SIMVASTATIN. [Suspect]
     Active Substance: SIMVASTATIN
     Indication: PRODUCT USED FOR UNKNOWN INDICATION
     Dosage: 20 MG, UNKNOWN FREQ.
     Route: 048
  4. TARCEVA [Suspect]
     Active Substance: ERLOTINIB HYDROCHLORIDE
     Indication: LUNG NEOPLASM MALIGNANT
     Dosage: 75 MG, ONCE DAILY FOR 3 WEEKS FOLLOWED BY 1 WEEK OFF
     Route: 048
     Dates: start: 20141111
  5. TARCEVA [Suspect]
     Active Substance: ERLOTINIB HYDROCHLORIDE
     Route: 048
     Dates: start: 20151210
  6. TARCEVA [Suspect]
     Active Substance: ERLOTINIB HYDROCHLORIDE
     Indication: BREAST CANCER FEMALE
     Dosage: 75 MG, ONCE DAILY, FOLLOWED BY 1 WEEK OFF
     Route: 048
  7. TARCEVA [Suspect]
     Active Substance: ERLOTINIB HYDROCHLORIDE
     Route: 048
     Dates: start: 201502

REACTIONS (25)
  - Urine output increased [Not Recovered/Not Resolved]
  - Muscle disorder [Unknown]
  - Hair growth abnormal [Unknown]
  - Nasal discomfort [Unknown]
  - Scab [Unknown]
  - Torticollis [Not Recovered/Not Resolved]
  - Nasal discomfort [Not Recovered/Not Resolved]
  - Alopecia [Unknown]
  - Macular degeneration [Unknown]
  - Haemorrhoids [Unknown]
  - Dry mouth [Unknown]
  - Dry eye [Unknown]
  - Diarrhoea [Unknown]
  - Rash [Recovered/Resolved]
  - Blepharitis [Unknown]
  - Rectal haemorrhage [Unknown]
  - Nasal dryness [Not Recovered/Not Resolved]
  - Laceration [Not Recovered/Not Resolved]
  - Eye inflammation [Unknown]
  - Clavicle fracture [Not Recovered/Not Resolved]
  - Epistaxis [Not Recovered/Not Resolved]
  - Epistaxis [Unknown]
  - Eyelid infection [Unknown]
  - Dyspnoea [Unknown]
  - Eye irritation [Not Recovered/Not Resolved]

NARRATIVE: CASE EVENT DATE: 20141117
